FAERS Safety Report 8457371-9 (Version None)
Quarter: 2012Q2

REPORT INFORMATION
  Report Type: 
  Country: None (occurrence: None)
  Receive Date: 20120621
  Receipt Date: 20120618
  Transmission Date: 20120825
  Serious: Yes (Other)
  Sender: FDA-Public Use
  Company Number: US-PFIZER INC-2012147400

PATIENT
  Sex: Female

DRUGS (2)
  1. HEROIN [Suspect]
  2. XANAX [Suspect]

REACTIONS (2)
  - OVERDOSE [None]
  - LOSS OF CONSCIOUSNESS [None]
